FAERS Safety Report 6902830-0 (Version None)
Quarter: 2010Q3

REPORT INFORMATION
  Report Type: 
  Country: None (occurrence: None)
  Receive Date: 20100803
  Receipt Date: 20080720
  Transmission Date: 20110219
  Serious: No
  Sender: FDA-Public Use
  Company Number: US-PFIZER INC-2008060716

PATIENT
  Sex: Female
  Weight: 49.1 kg

DRUGS (4)
  1. LYRICA [Suspect]
     Indication: PAIN
     Route: 048
     Dates: start: 20080701
  2. DRUG, UNSPECIFIED [Concomitant]
  3. ACETYLSALICYLIC ACID SRT [Concomitant]
  4. ESTROGENS SOL/INJ [Concomitant]

REACTIONS (2)
  - HEADACHE [None]
  - NAUSEA [None]
